FAERS Safety Report 4706235-2 (Version None)
Quarter: 2005Q2

REPORT INFORMATION
  Report Type: 
  Country: None (occurrence: None)
  Receive Date: 20050113
  Receipt Date: 20050113
  Transmission Date: 20051028
  Serious: Yes (Other)
  Sender: FDA-Public Use
  Company Number: None

PATIENT
  Sex: Male
  Weight: 112.9 kg

DRUGS (2)
  1. (GENERIC)  MYSOLINE    50MG [Suspect]
     Indication: CONVULSION
     Dosage: 3 TABS Q AM + 6 TABS Q PM  2001 OR 2002
     Dates: start: 20010101
  2. (GENERIC)  MYSOLINE    50MG [Suspect]
     Indication: CONVULSION
     Dosage: 3 TABS Q AM + 6 TABS Q PM  2001 OR 2002
     Dates: start: 20020101

REACTIONS (3)
  - CONVULSION [None]
  - DISEASE RECURRENCE [None]
  - THERAPEUTIC RESPONSE UNEXPECTED WITH DRUG SUBSTITUTION [None]
